FAERS Safety Report 14996402 (Version 3)
Quarter: 2018Q3

REPORT INFORMATION
  Report Type: Report from Study
  Country: US (occurrence: US)
  Receive Date: 20180611
  Receipt Date: 20180926
  Transmission Date: 20181010
  Serious: Yes (Life-Threatening, Hospitalization, Disabling, Other)
  Sender: FDA-Public Use
  Company Number: PHEH2018US022907

PATIENT
  Sex: Female

DRUGS (1)
  1. ENTRESTO [Suspect]
     Active Substance: SACUBITRIL\VALSARTAN
     Indication: CARDIAC FAILURE
     Dosage: 1 DF (24MG SACUBITRIL, 26MG VALSARTAN), BID
     Route: 048

REACTIONS (8)
  - Road traffic accident [Unknown]
  - Heart rate increased [Unknown]
  - Cervical vertebral fracture [Recovering/Resolving]
  - Head injury [Recovering/Resolving]
  - Lymphoma [Unknown]
  - Malaise [Unknown]
  - Decreased appetite [Unknown]
  - Hypotension [Unknown]
